FAERS Safety Report 13194662 (Version 3)
Quarter: 2017Q3

REPORT INFORMATION
  Report Type: Spontaneous
  Country: JP (occurrence: JP)
  Receive Date: 20170207
  Receipt Date: 20170721
  Transmission Date: 20171127
  Serious: Yes (Hospitalization)
  Sender: FDA-Public Use
  Company Number: JP-ELI_LILLY_AND_COMPANY-JP201702000456

PATIENT
  Age: 90 Year
  Sex: Female
  Weight: 45.3 kg

DRUGS (1)
  1. TRULICITY [Suspect]
     Active Substance: DULAGLUTIDE
     Indication: TYPE 2 DIABETES MELLITUS
     Dosage: 0.75 MG, WEEKLY (1/W)
     Route: 058
     Dates: start: 20160531, end: 20160916

REACTIONS (4)
  - Duodenal ulcer haemorrhage [Recovering/Resolving]
  - Femoral hernia incarcerated [Recovered/Resolved]
  - Lipase increased [Recovered/Resolved]
  - Emphysematous cystitis [Recovering/Resolving]

NARRATIVE: CASE EVENT DATE: 20160617
